FAERS Safety Report 24562143 (Version 1)
Quarter: 2024Q4

REPORT INFORMATION
  Report Type: Spontaneous
  Country: PL (occurrence: PL)
  Receive Date: 20241029
  Receipt Date: 20241029
  Transmission Date: 20250115
  Serious: Yes (Life-Threatening, Hospitalization, Other)
  Sender: NOVARTIS
  Company Number: PL-002147023-NVSC2024PL208185

PATIENT
  Age: 46 Year

DRUGS (1)
  1. CARBAMAZEPINE [Suspect]
     Active Substance: CARBAMAZEPINE
     Indication: Suicide attempt
     Dosage: 200 MG (SEVERAL DOZEN TABLET)
     Route: 048

REACTIONS (13)
  - Toxicity to various agents [Recovered/Resolved]
  - Intentional overdose [Recovered/Resolved]
  - Suicide attempt [Recovered/Resolved]
  - Respiratory distress [Recovered/Resolved]
  - Hypopnoea [Recovered/Resolved]
  - Respiratory rate increased [Recovered/Resolved]
  - Myocardial ischaemia [Recovered/Resolved]
  - Cardiac output decreased [Recovered/Resolved]
  - Ventricular tachycardia [Recovered/Resolved]
  - Ventricular fibrillation [Recovered/Resolved]
  - Arteriospasm coronary [Recovered/Resolved]
  - Cardiac arrest [Recovered/Resolved]
  - Altered state of consciousness [Recovered/Resolved]
